FAERS Safety Report 12632122 (Version 3)
Quarter: 2016Q3

REPORT INFORMATION
  Report Type: Spontaneous
  Country: US (occurrence: US)
  Receive Date: 20160808
  Receipt Date: 20160822
  Transmission Date: 20161109
  Serious: No
  Sender: FDA-Public Use
  Company Number: US-BEH-2016061941

PATIENT
  Sex: Female
  Weight: 69.85 kg

DRUGS (28)
  1. CALCIUM [Concomitant]
     Active Substance: CALCIUM
  2. CYCLOBENZAPRINE [Concomitant]
     Active Substance: CYCLOBENZAPRINE
  3. SIMVASTATIN. [Concomitant]
     Active Substance: SIMVASTATIN
  4. SPIRIVA [Concomitant]
     Active Substance: TIOTROPIUM BROMIDE MONOHYDRATE
  5. EPIPEN [Concomitant]
     Active Substance: EPINEPHRINE
  6. GEODON [Concomitant]
     Active Substance: ZIPRASIDONE HYDROCHLORIDE\ZIPRASIDONE MESYLATE
  7. PATADAY [Concomitant]
     Active Substance: OLOPATADINE HYDROCHLORIDE
  8. LORATADINE. [Concomitant]
     Active Substance: LORATADINE
  9. IPRATROPIUM [Concomitant]
     Active Substance: IPRATROPIUM
  10. CYMBALTA [Concomitant]
     Active Substance: DULOXETINE HYDROCHLORIDE
  11. OMEPRAZOLE. [Concomitant]
     Active Substance: OMEPRAZOLE
  12. FLONANSE [Concomitant]
  13. VITAMIN D [Concomitant]
     Active Substance: CHOLECALCIFEROL
  14. HIZENTRA [Suspect]
     Active Substance: HUMAN IMMUNOGLOBULIN G
     Dosage: UNK
     Route: 058
  15. ASTEPRO [Concomitant]
     Active Substance: AZELASTINE HYDROCHLORIDE
  16. SYMBICORT [Concomitant]
     Active Substance: BUDESONIDE\FORMOTEROL FUMARATE DIHYDRATE
  17. HIZENTRA [Suspect]
     Active Substance: HUMAN IMMUNOGLOBULIN G
     Indication: SELECTIVE IGG SUBCLASS DEFICIENCY
     Route: 058
  18. CETIRIZINE [Concomitant]
     Active Substance: CETIRIZINE HYDROCHLORIDE
  19. SINGULAIR [Concomitant]
     Active Substance: MONTELUKAST SODIUM
  20. VENTOLIN [Concomitant]
     Active Substance: ALBUTEROL SULFATE
  21. HIZENTRA [Suspect]
     Active Substance: HUMAN IMMUNOGLOBULIN G
     Dosage: 7 G, QW
     Route: 058
     Dates: start: 20130814
  22. DIPHENHYDRAMINE. [Concomitant]
     Active Substance: DIPHENHYDRAMINE
  23. THEOPHYLLINE [Concomitant]
     Active Substance: THEOPHYLLINE ANHYDROUS
  24. XOPENEX [Concomitant]
     Active Substance: LEVALBUTEROL HYDROCHLORIDE
  25. TRAMADOL. [Concomitant]
     Active Substance: TRAMADOL
  26. ACETAMINOPHEN. [Concomitant]
     Active Substance: ACETAMINOPHEN
  27. LIDOCAINE/PRILOCAINE [Concomitant]
     Active Substance: LIDOCAINE\PRILOCAINE
  28. HYDROXYZINE [Concomitant]
     Active Substance: HYDROXYZINE\HYDROXYZINE HYDROCHLORIDE

REACTIONS (2)
  - Sinusitis [Unknown]
  - Sinus congestion [Unknown]
